FAERS Safety Report 8778684 (Version 1)
Quarter: 2012Q4

REPORT INFORMATION
  Report Type: 
  Country: GB (occurrence: GB)
  Receive Date: 20120913
  Receipt Date: 20120913
  Transmission Date: 20130627
  Serious: Yes (Death, Hospitalization)
  Sender: FDA-Public Use
  Company Number: GB-ROCHE-1119886

PATIENT
  Age: 74 Year
  Sex: Male
  Weight: 67 kg

DRUGS (1)
  1. CAPECITABINE [Suspect]
     Indication: METASTATIC NEOPLASM
     Route: 048
     Dates: start: 20110930, end: 20111011

REACTIONS (6)
  - Renal failure acute [Unknown]
  - Mucosal inflammation [Unknown]
  - Neutropenic sepsis [Fatal]
  - Respiratory distress [Unknown]
  - Thrombocytopenia [Unknown]
  - Malaise [Unknown]
